FAERS Safety Report 7984070-X (Version None)
Quarter: 2011Q4

REPORT INFORMATION
  Report Type: 
  Country: None (occurrence: None)
  Receive Date: 20111216
  Receipt Date: 20111209
  Transmission Date: 20120403
  Serious: Yes (Congenital Anomaly, Other)
  Sender: FDA-Public Use
  Company Number: US-PFIZER INC-2011302156

PATIENT
  Sex: Female
  Weight: 2.8 kg

DRUGS (5)
  1. AMBIEN [Concomitant]
     Indication: INSOMNIA
     Dosage: 10-15 MG, AS NEEDED (PRN)
     Route: 064
  2. XOPENEX [Concomitant]
     Dosage: 5- 6 TIMES DAILY
     Route: 064
  3. ZOLOFT [Suspect]
     Dosage: 50 MG, UNK
     Route: 064
  4. PRILOSEC [Concomitant]
     Dosage: 20 MG, DAILY
     Route: 064
  5. PROVENTIL GENTLEHALER [Concomitant]
     Dosage: 5- 6 TIMES DAILY
     Route: 064

REACTIONS (3)
  - MATERNAL EXPOSURE DURING PREGNANCY [None]
  - VENTRICULAR SEPTAL DEFECT [None]
  - ATRIAL SEPTAL DEFECT [None]
